FAERS Safety Report 10557092 (Version 1)
Quarter: 2014Q4

REPORT INFORMATION
  Report Type: Spontaneous
  Country: US (occurrence: None)
  Receive Date: 20141030
  Receipt Date: 20141030
  Transmission Date: 20150529
  Serious: Yes (Disabling, Other)
  Sender: FDA-Public Use
  Company Number: None

PATIENT

DRUGS (2)
  1. RISPERIDONE RISPERIDONE (CONSTRA INJECTION) ZYDUS PHARMACEUTICAL [Suspect]
     Active Substance: RISPERIDONE
     Indication: NERVOUSNESS
     Dosage: 36MG ?TIME RELEASED 2 WK INTERVAL ?36MG TIME REALSED INJECT?2 WK INJECT. 36 MG ?TIME RELEASED PILL (NOT NOW) 2MG/DAY?MOUTH AND INJECTION SHOT CONSTA
     Dates: start: 200701
  2. RISPERIDONE RISPERIDONE (CONSTRA INJECTION) ZYDUS PHARMACEUTICAL [Suspect]
     Active Substance: RISPERIDONE
     Indication: ANXIETY
     Dosage: 36MG ?TIME RELEASED 2 WK INTERVAL ?36MG TIME REALSED INJECT?2 WK INJECT. 36 MG ?TIME RELEASED PILL (NOT NOW) 2MG/DAY?MOUTH AND INJECTION SHOT CONSTA
     Dates: start: 200701

REACTIONS (5)
  - Gait disturbance [None]
  - Arthropathy [None]
  - Chest pain [None]
  - Muscular weakness [None]
  - Asthenia [None]

NARRATIVE: CASE EVENT DATE: 200809
